FAERS Safety Report 6285016-5 (Version None)
Quarter: 2009Q3

REPORT INFORMATION
  Report Type: 
  Country: None (occurrence: None)
  Receive Date: 20090727
  Receipt Date: 20090617
  Transmission Date: 20100115
  Serious: Yes (Other)
  Sender: FDA-Public Use
  Company Number: US-ABBOTT-09P-163-0580494-00

PATIENT

DRUGS (3)
  1. NORVIR [Suspect]
     Indication: HIV INFECTION
  2. PREZISTA [Suspect]
     Indication: HIV INFECTION
     Route: 048
  3. EPZICOM [Suspect]
     Indication: HIV INFECTION

REACTIONS (2)
  - DRUG INEFFECTIVE [None]
  - MYCOBACTERIUM AVIUM COMPLEX INFECTION [None]
